FAERS Safety Report 15680136 (Version 1)
Quarter: 2018Q4

REPORT INFORMATION
  Report Type: Report from Study
  Country: US (occurrence: US)
  Receive Date: 20181203
  Receipt Date: 20181203
  Transmission Date: 20190205
  Serious: Yes (Other)
  Sender: FDA-Public Use
  Company Number: US-ROCHE-2223433

PATIENT
  Sex: Female

DRUGS (5)
  1. TRASTUZUMAB. [Suspect]
     Active Substance: TRASTUZUMAB
     Indication: HER-2 POSITIVE BREAST CANCER
     Route: 042
  2. TRASTUZUMAB. [Suspect]
     Active Substance: TRASTUZUMAB
     Route: 042
  3. CYCLOPHOSPHAMIDE. [Suspect]
     Active Substance: CYCLOPHOSPHAMIDE
     Indication: HER-2 POSITIVE BREAST CANCER
     Route: 042
  4. 64CU-MM-302 [Suspect]
     Active Substance: INVESTIGATIONAL PRODUCT
     Indication: HER-2 POSITIVE BREAST CANCER
     Dosage: APPROXIMATELY 3 - 5 MG/M2 FOR THE FIRST CYCLE ONLY IN ADDITION TO THE MM-302 DOSE
     Route: 042
  5. MM-302 [Suspect]
     Active Substance: INVESTIGATIONAL PRODUCT
     Indication: HER-2 POSITIVE BREAST CANCER
     Route: 042

REACTIONS (1)
  - Hyponatraemia [Unknown]
